FAERS Safety Report 16391606 (Version 7)
Quarter: 2019Q4

REPORT INFORMATION
  Report Type: Spontaneous
  Country: DE (occurrence: DE)
  Receive Date: 20190605
  Receipt Date: 20191210
  Transmission Date: 20200122
  Serious: Yes (Other)
  Sender: FDA-Public Use
  Company Number: DE-CELLTRION INC.-2019DE021689

PATIENT

DRUGS (17)
  1. CYTARABINE. [Suspect]
     Active Substance: CYTARABINE
     Indication: MANTLE CELL LYMPHOMA
     Dosage: UNK (HIGH-DOSE) (3 CYCLES)
     Route: 065
  2. MELPHALAN. [Concomitant]
     Active Substance: MELPHALAN
     Indication: MANTLE CELL LYMPHOMA STAGE IV
     Dosage: RECEIVED THREE CYCLES; PART OF HIGH-DOSE BEAM REGIMEN
     Route: 065
  3. RITUXIMAB (UNKNOWN) [Suspect]
     Active Substance: RITUXIMAB
     Dosage: 1000 MILLIGRAM/SQ. METER, Q8WK, MAINTENANCE THERAPY; ADDITIONAL INFO: ACTION TAKEN: MAINTENANCE THER
     Route: 065
  4. DOXORUBICIN [Suspect]
     Active Substance: DOXORUBICIN
     Indication: MANTLE CELL LYMPHOMA STAGE IV
     Dosage: RECEIVED THREE CYCLES; PART OF MAXI-CHOP REGIMEN
     Route: 065
  5. PREDNISOLONE. [Suspect]
     Active Substance: PREDNISOLONE
     Indication: MANTLE CELL LYMPHOMA
     Dosage: UNK (3 CYCLES)
     Route: 065
  6. CYCLOPHOSPHAMIDE. [Suspect]
     Active Substance: CYCLOPHOSPHAMIDE
     Indication: MANTLE CELL LYMPHOMA STAGE IV
     Dosage: RECEIVED THREE CYCLES; PART OF MAXI-CHOP REGIMEN
     Route: 065
  7. ETOPOSIDE. [Suspect]
     Active Substance: ETOPOSIDE
     Indication: MANTLE CELL LYMPHOMA STAGE IV
     Dosage: RECEIVED THREE CYCLES; PART OF HIGH-DOSE BEAM REGIMEN
     Route: 065
  8. CYTARABINE. [Suspect]
     Active Substance: CYTARABINE
     Indication: MANTLE CELL LYMPHOMA STAGE IV
     Dosage: RECEIVED THREE CYCLES; PART OF HIGH-DOSE BEAM REGIMEN
     Route: 065
  9. MELPHALAN. [Concomitant]
     Active Substance: MELPHALAN
     Indication: MANTLE CELL LYMPHOMA
     Dosage: UNK
     Route: 065
  10. RITUXIMAB (UNKNOWN) [Suspect]
     Active Substance: RITUXIMAB
     Indication: MANTLE CELL LYMPHOMA STAGE IV
     Dosage: RECEIVED THREE CYCLES (ADDITIONAL INFO: ACTION TAKEN: MAINTENANCE THERAPY WAS CONTINUED)
     Route: 065
  11. PREDNISOLONE. [Suspect]
     Active Substance: PREDNISOLONE
     Indication: MANTLE CELL LYMPHOMA STAGE IV
     Dosage: RECEIVED THREE CYCLES; PART OF MAXI-CHOP REGIMEN
     Route: 065
  12. CYCLOPHOSPHAMIDE. [Suspect]
     Active Substance: CYCLOPHOSPHAMIDE
     Indication: MANTLE CELL LYMPHOMA
     Dosage: UNK (3 CYCLES)
     Route: 065
  13. BICNU [Concomitant]
     Active Substance: CARMUSTINE
     Indication: MANTLE CELL LYMPHOMA STAGE IV
     Dosage: RECEIVED THREE CYCLES; PART OF HIGH-DOSE BEAM REGIMEN
     Route: 065
  14. BICNU [Concomitant]
     Active Substance: CARMUSTINE
     Indication: MANTLE CELL LYMPHOMA
     Dosage: UNK
     Route: 065
  15. VINCRISTINE [Suspect]
     Active Substance: VINCRISTINE
     Indication: MANTLE CELL LYMPHOMA STAGE IV
     Dosage: UNK (RECEIVED THREE CYCLES; PART OF MAXI-CHOP REGIMEN)
     Route: 065
  16. ADALIMUMAB [Concomitant]
     Active Substance: ADALIMUMAB
     Indication: PSORIASIS
     Route: 065
  17. DOXORUBICIN [Suspect]
     Active Substance: DOXORUBICIN
     Indication: MANTLE CELL LYMPHOMA
     Dosage: UNK (3 CYCLES)
     Route: 065

REACTIONS (14)
  - Thrombocytopenia [Unknown]
  - Pancytopenia [Recovering/Resolving]
  - Psoriasis [Not Recovered/Not Resolved]
  - Retinal haemorrhage [Recovered/Resolved]
  - Lymphopenia [Unknown]
  - Hepatic infection fungal [Recovered/Resolved]
  - Aspergillus infection [Recovered/Resolved]
  - Bronchopulmonary aspergillosis [Recovered/Resolved]
  - Product use in unapproved indication [Unknown]
  - Febrile neutropenia [Recovered/Resolved]
  - Mantle cell lymphoma stage IV [Recovered/Resolved]
  - Psoriatic arthropathy [Recovered/Resolved]
  - Herpes zoster [Recovered/Resolved]
  - Pyrexia [Recovered/Resolved]

NARRATIVE: CASE EVENT DATE: 2016
